FAERS Safety Report 8520265-4 (Version None)
Quarter: 2012Q3

REPORT INFORMATION
  Report Type: 
  Country: None (occurrence: None)
  Receive Date: 20120713
  Receipt Date: 20120713
  Transmission Date: 20120928
  Serious: Yes (Hospitalization)
  Sender: FDA-Public Use
  Company Number: None

PATIENT
  Age: 66 Year
  Sex: Male

DRUGS (1)
  1. ALLOPURINOL [Suspect]
     Indication: GOUT
     Dosage: 450 MG EVERY DAY PO
     Route: 048
     Dates: start: 19990415, end: 20120127

REACTIONS (3)
  - SKIN DISORDER [None]
  - RASH PUSTULAR [None]
  - BACTERAEMIA [None]
